FAERS Safety Report 8760310 (Version 2)
Quarter: 2012Q4

REPORT INFORMATION
  Report Type: Spontaneous
  Country: US (occurrence: None)
  Receive Date: 20120820
  Receipt Date: 20121016
  Transmission Date: 20130627
  Serious: Yes (Hospitalization)
  Sender: FDA-Public Use
  Company Number: SP06009

PATIENT
  Age: 64 Year
  Sex: Female
  Weight: 91.45 kg

DRUGS (11)
  1. MOVIPREP [Suspect]
     Indication: BOWEL PREPARATION
     Route: 048
     Dates: start: 201208, end: 201208
  2. COUMADIN [Concomitant]
  3. ATACAND [Concomitant]
  4. LEVOTHYROXINE [Concomitant]
  5. PROTONIX [Concomitant]
  6. COREG CR(CAPSULES) [Concomitant]
  7. MAGNESIUM HYDROXIDE [Concomitant]
  8. SIMVASTATIN [Concomitant]
  9. POTASSIUM(CAPSULES) [Concomitant]
  10. ALLEGRA [Concomitant]
  11. BUMEX [Concomitant]

REACTIONS (3)
  - Dehydration [None]
  - Hypertension [None]
  - Blood pressure decreased [None]
